FAERS Safety Report 19238093 (Version 1)
Quarter: 2021Q2

REPORT INFORMATION
  Report Type: Spontaneous
  Country: US (occurrence: US)
  Receive Date: 20210510
  Receipt Date: 20210510
  Transmission Date: 20210717
  Serious: Yes (Hospitalization)
  Sender: FDA-Public Use
  Company Number: None

PATIENT
  Age: 54 Year
  Sex: Male

DRUGS (1)
  1. REGENERON ( CASIRIVIMAB ? IMDEVIMAB) [Suspect]
     Active Substance: CASIRIVIMAB\IMDEVIMAB
     Route: 042
     Dates: start: 20210503, end: 20210503

REACTIONS (5)
  - Haemoptysis [None]
  - Dyspnoea [None]
  - Chest X-ray abnormal [None]
  - Cough [None]
  - Lung opacity [None]

NARRATIVE: CASE EVENT DATE: 20210504
